FAERS Safety Report 25388966 (Version 2)
Quarter: 2025Q2

REPORT INFORMATION
  Report Type: Spontaneous
  Country: JP (occurrence: JP)
  Receive Date: 20250603
  Receipt Date: 20250617
  Transmission Date: 20250716
  Serious: Yes (Hospitalization)
  Sender: JOHNSON AND JOHNSON
  Company Number: JP-JNJFOC-20250601692

PATIENT
  Age: 86 Year
  Sex: Male

DRUGS (3)
  1. ERLEADA [Suspect]
     Active Substance: APALUTAMIDE
     Indication: Hormone-refractory prostate cancer
     Route: 048
     Dates: start: 20200125, end: 20200401
  2. ERLEADA [Suspect]
     Active Substance: APALUTAMIDE
     Route: 048
     Dates: start: 20200402, end: 20241122
  3. ZOLEDRONIC ACID [Concomitant]
     Active Substance: ZOLEDRONIC ACID
     Indication: Product used for unknown indication
     Route: 041
     Dates: start: 20180329

REACTIONS (1)
  - Cerebral infarction [Recovering/Resolving]

NARRATIVE: CASE EVENT DATE: 20241122
